FAERS Safety Report 17015206 (Version 1)
Quarter: 2019Q4

REPORT INFORMATION
  Report Type: Spontaneous
  Country: US (occurrence: US)
  Receive Date: 20191108
  Receipt Date: 20191108
  Transmission Date: 20200122
  Serious: Yes (Other)
  Sender: FDA-Public Use
  Company Number: None

PATIENT
  Age: 32 Year
  Sex: Female

DRUGS (1)
  1. HUMIRA [Suspect]
     Active Substance: ADALIMUMAB
     Indication: CROHN^S DISEASE
     Dosage: 40 MG SUBCUTANEOUS EVERY 10 DAYS
     Route: 058
     Dates: start: 20160407

REACTIONS (3)
  - Maternal exposure during pregnancy [None]
  - Therapy cessation [None]
  - Pregnancy [None]

NARRATIVE: CASE EVENT DATE: 20191001
